FAERS Safety Report 9632413 (Version 1)
Quarter: 2013Q4

REPORT INFORMATION
  Report Type: Spontaneous
  Country: CN (occurrence: None)
  Receive Date: 20131016
  Receipt Date: 20131016
  Transmission Date: 20140711
  Serious: Yes (Life-Threatening, Hospitalization)
  Sender: FDA-Public Use
  Company Number: 2013/193

PATIENT
  Age: 41 Year
  Sex: Male

DRUGS (1)
  1. VALPROIC ACID [Suspect]
     Route: 048

REACTIONS (2)
  - Hypofibrinogenaemia [None]
  - Cerebral haemorrhage [None]
